FAERS Safety Report 21286731 (Version 1)
Quarter: 2022Q3

REPORT INFORMATION
  Report Type: Spontaneous
  Country: FR (occurrence: FR)
  Receive Date: 20220902
  Receipt Date: 20220902
  Transmission Date: 20221027
  Serious: Yes (Life-Threatening, Hospitalization)
  Sender: FDA-Public Use
  Company Number: None

PATIENT

DRUGS (2)
  1. TIBSOVO [Suspect]
     Active Substance: IVOSIDENIB
     Indication: Refractory anaemia with an excess of blasts
     Dosage: 500 MG, DAILY
     Route: 048
     Dates: start: 20201015, end: 20201203
  2. TIBSOVO [Suspect]
     Active Substance: IVOSIDENIB
     Dosage: 250 MG, DAILY
     Route: 048
     Dates: start: 20201203, end: 20201208

REACTIONS (5)
  - Diverticulitis [Recovering/Resolving]
  - Bullous haemorrhagic dermatosis [Recovering/Resolving]
  - Pneumonia [Recovering/Resolving]
  - Pancytopenia [Not Recovered/Not Resolved]
  - Fungal infection [Recovering/Resolving]

NARRATIVE: CASE EVENT DATE: 20201203
